APPROVED DRUG PRODUCT: LEVOTHYROXINE SODIUM
Active Ingredient: LEVOTHYROXINE SODIUM
Strength: 500MCG/VIAL
Dosage Form/Route: POWDER;INTRAVENOUS
Application: N202231 | Product #003 | TE Code: AP
Applicant: FRESENIUS KABI USA LLC
Approved: Jun 24, 2011 | RLD: Yes | RS: Yes | Type: RX

PATENTS:
Patent 9168238 | Expires: Aug 29, 2032
Patent 9168239 | Expires: Aug 29, 2032
Patent 9006289 | Expires: Oct 3, 2032